FAERS Safety Report 24023196 (Version 1)
Quarter: 2024Q2

REPORT INFORMATION
  Report Type: Report from Study
  Country: RO (occurrence: RO)
  Receive Date: 20240627
  Receipt Date: 20240627
  Transmission Date: 20240716
  Serious: No
  Sender: FDA-Public Use
  Company Number: RO-ROCHE-3494580

PATIENT
  Age: 48 Year
  Sex: Female
  Weight: 77.0 kg

DRUGS (1)
  1. ALECENSA [Suspect]
     Active Substance: ALECTINIB HYDROCHLORIDE
     Indication: Lung neoplasm
     Route: 065

REACTIONS (5)
  - Memory impairment [Unknown]
  - Muscle spasms [Unknown]
  - Abdominal distension [Unknown]
  - Pain in extremity [Unknown]
  - Burning sensation [Unknown]
